FAERS Safety Report 7984325-9 (Version None)
Quarter: 2011Q4

REPORT INFORMATION
  Report Type: 
  Country: None (occurrence: None)
  Receive Date: 20111216
  Receipt Date: 20111208
  Transmission Date: 20120403
  Serious: Yes (Hospitalization)
  Sender: FDA-Public Use
  Company Number: CZ-JNJFOC-20111205087

PATIENT
  Age: 69 Year
  Sex: Female

DRUGS (5)
  1. MEDROL [Concomitant]
  2. SIMPONI [Suspect]
     Indication: RHEUMATOID ARTHRITIS
     Route: 058
  3. BONIVA [Concomitant]
  4. AULIN [Concomitant]
  5. OMEPRAZOLE [Concomitant]

REACTIONS (2)
  - HYPERTENSION [None]
  - ATRIAL FIBRILLATION [None]
